FAERS Safety Report 5024053-5 (Version None)
Quarter: 2006Q2

REPORT INFORMATION
  Report Type: 
  Country: None (occurrence: None)
  Receive Date: 20060612
  Receipt Date: 20060606
  Transmission Date: 20061013
  Serious: Yes (Other)
  Sender: FDA-Public Use
  Company Number: US-MERCK-0606USA00975

PATIENT
  Age: 60 Year
  Sex: Female

DRUGS (4)
  1. FOSAMAX [Suspect]
     Indication: OSTEOPENIA
     Route: 048
     Dates: start: 20020101, end: 20060502
  2. ZYRTEC [Concomitant]
     Route: 065
  3. ZOLOFT [Concomitant]
     Route: 065
  4. ATIVAN [Concomitant]
     Route: 065

REACTIONS (1)
  - OSTEONECROSIS [None]
